FAERS Safety Report 4641968-8 (Version None)
Quarter: 2005Q2

REPORT INFORMATION
  Report Type: 
  Country: None (occurrence: None)
  Receive Date: 20050420
  Receipt Date: 20050407
  Transmission Date: 20051028
  Serious: Yes (Other)
  Sender: FDA-Public Use
  Company Number: 2005056521

PATIENT
  Age: 15 Year
  Sex: Male

DRUGS (2)
  1. ZITHROMAX [Suspect]
     Indication: LYME DISEASE
     Dosage: 250 MG INTRAVENOUS  ; 500 MG (500 MG, 1 IN 1 D) INTRAVENOUS
     Route: 042
     Dates: start: 20050314
  2. ALLEGRA-D [Concomitant]

REACTIONS (2)
  - CHEST PAIN [None]
  - INFUSION RELATED REACTION [None]
